FAERS Safety Report 15688775 (Version 1)
Quarter: 2018Q4

REPORT INFORMATION
  Report Type: Report from Study
  Country: FR (occurrence: FR)
  Receive Date: 20181205
  Receipt Date: 20181205
  Transmission Date: 20190205
  Serious: Yes (Hospitalization, Other)
  Sender: FDA-Public Use
  Company Number: FR-AUROBINDO-AUR-APL-2018-058270

PATIENT
  Age: 68 Year
  Sex: Female

DRUGS (10)
  1. DICLOFENAC [Concomitant]
     Active Substance: DICLOFENAC
     Indication: ARTHRALGIA
     Dosage: UNK
     Route: 065
  2. INSULIN                            /01223201/ [Concomitant]
     Indication: TYPE 2 DIABETES MELLITUS
     Dosage: 64 INTERNATIONAL UNIT, DAILY
     Route: 065
  3. AMOXICILLIN. [Suspect]
     Active Substance: AMOXICILLIN
     Indication: PHARYNGITIS
     Dosage: 2 GRAM, DAILY
     Route: 065
  4. INSULIN W/ISOPHANE INSULIN [Concomitant]
     Dosage: 32 INTERNATIONAL UNIT, DAILY
     Route: 065
  5. METFORMIN [Suspect]
     Active Substance: METFORMIN HYDROCHLORIDE
     Indication: TYPE 2 DIABETES MELLITUS
     Dosage: 3 GRAM, DAILY
     Route: 065
  6. ROSUVASTATIN. [Concomitant]
     Active Substance: ROSUVASTATIN
     Indication: PRODUCT USED FOR UNKNOWN INDICATION
     Dosage: 10 MILLIGRAM, DAILY
     Route: 065
  7. ACETYLSALICYLIC ACID [Concomitant]
     Active Substance: ASPIRIN
     Indication: PRODUCT USED FOR UNKNOWN INDICATION
     Dosage: 75 MILLIGRAM, DAILY
     Route: 065
  8. INSULIN                            /01223201/ [Concomitant]
     Dosage: 36 INTERNATIONAL UNIT, DAILY
     Route: 065
  9. INSULIN W/ISOPHANE INSULIN [Concomitant]
     Indication: DIABETES MELLITUS
     Dosage: 18 INTERNATIONAL UNIT, DAILY
     Route: 065
  10. DICLOFENAC [Concomitant]
     Active Substance: DICLOFENAC
     Indication: MUSCULOSKELETAL PAIN
     Dosage: 150 MILLIGRAM, DAILY
     Route: 065

REACTIONS (10)
  - Renal cyst [Recovering/Resolving]
  - Amylase increased [Recovered/Resolved]
  - Blood pressure decreased [Recovering/Resolving]
  - Blood potassium increased [Recovered/Resolved]
  - Nausea [Recovering/Resolving]
  - Chest pain [Recovering/Resolving]
  - Anuria [Recovering/Resolving]
  - Contraindicated product administered [Unknown]
  - Overdose [Unknown]
  - Lactic acidosis [Recovering/Resolving]
